FAERS Safety Report 19948557 (Version 1)
Quarter: 2021Q4

REPORT INFORMATION
  Report Type: Report from Study
  Country: CH (occurrence: CH)
  Receive Date: 20211012
  Receipt Date: 20211012
  Transmission Date: 20220303
  Serious: Yes (Other)
  Sender: FDA-Public Use
  Company Number: CH-BAYER-2021A223867

PATIENT

DRUGS (1)
  1. EYLEA [Suspect]
     Active Substance: AFLIBERCEPT
     Indication: Neovascular age-related macular degeneration
     Dosage: UNK, ONCE
     Route: 031

REACTIONS (2)
  - Type III immune complex mediated reaction [Recovered/Resolved]
  - Rash erythematous [Recovered/Resolved]
